FAERS Safety Report 12584317 (Version 1)
Quarter: 2016Q3

REPORT INFORMATION
  Report Type: Spontaneous
  Country: IT (occurrence: IT)
  Receive Date: 20160722
  Receipt Date: 20160722
  Transmission Date: 20161109
  Serious: Yes (Other)
  Sender: FDA-Public Use
  Company Number: IT-MYLANLABS-2016M1005089

PATIENT

DRUGS (1)
  1. FUROSEMIDE. [Suspect]
     Active Substance: FUROSEMIDE
     Indication: ANURIA
     Dosage: 50 MG, TOTAL
     Route: 048
     Dates: start: 20160112, end: 20160112

REACTIONS (3)
  - Hypokalaemia [Recovering/Resolving]
  - Abdominal discomfort [Recovering/Resolving]
  - Headache [Recovering/Resolving]

NARRATIVE: CASE EVENT DATE: 20160112
